FAERS Safety Report 5091819-5 (Version None)
Quarter: 2006Q3

REPORT INFORMATION
  Report Type: 
  Country: None (occurrence: None)
  Receive Date: 20060824
  Receipt Date: 20060817
  Transmission Date: 20061208
  Serious: Yes (Life-Threatening)
  Sender: FDA-Public Use
  Company Number: 2006EU002345

PATIENT
  Age: 61 Year
  Sex: Male

DRUGS (2)
  1. PROTOPIC [Suspect]
     Indication: SEBORRHOEIC DERMATITIS
     Dosage: 0.1%, TOPICAL
     Route: 061
  2. AZATHIOPRINE [Concomitant]

REACTIONS (1)
  - SQUAMOUS CELL CARCINOMA [None]
